FAERS Safety Report 10273192 (Version 1)
Quarter: 2014Q2

REPORT INFORMATION
  Report Type: Spontaneous
  Country: US (occurrence: None)
  Receive Date: 20140630
  Receipt Date: 20140630
  Transmission Date: 20141212
  Serious: Yes (Hospitalization)
  Sender: FDA-Public Use
  Company Number: None

PATIENT
  Age: 43 Year
  Sex: Male
  Weight: 125.9 kg

DRUGS (1)
  1. LISINOPRIL [Suspect]
     Indication: HYPERTENSION
     Route: 048
     Dates: start: 20131202, end: 20140621

REACTIONS (5)
  - Pharyngeal oedema [None]
  - Swelling face [None]
  - Lymph node pain [None]
  - Oral hairy leukoplakia [None]
  - Angioedema [None]
